FAERS Safety Report 6163705-0 (Version None)
Quarter: 2009Q2

REPORT INFORMATION
  Report Type: 
  Country: None (occurrence: None)
  Receive Date: 20090420
  Receipt Date: 20090420
  Transmission Date: 20091009
  Serious: Yes (Other)
  Sender: FDA-Public Use
  Company Number: None

PATIENT
  Sex: Female
  Weight: 68.0396 kg

DRUGS (1)
  1. DIGOXIN [Suspect]
     Indication: HEART RATE IRREGULAR
     Dosage: 1 1QD PO
     Route: 048
     Dates: start: 20080929, end: 20090403

REACTIONS (3)
  - EMOTIONAL DISORDER [None]
  - HEART RATE IRREGULAR [None]
  - STRESS [None]
